FAERS Safety Report 11795455 (Version 6)
Quarter: 2016Q2

REPORT INFORMATION
  Report Type: Report from Study
  Country: JP (occurrence: JP)
  Receive Date: 20151202
  Receipt Date: 20160426
  Transmission Date: 20160815
  Serious: Yes (Hospitalization)
  Sender: FDA-Public Use
  Company Number: JP-DSJP-DSJ-2015-137027

PATIENT
  Age: 67 Year
  Sex: Male
  Weight: 63 kg

DRUGS (15)
  1. RENIVACE [Concomitant]
     Active Substance: ENALAPRIL
     Dosage: 5MG/DAY
     Route: 048
     Dates: start: 20151208
  2. ELIQUIS [Concomitant]
     Active Substance: APIXABAN
     Dosage: 10MG/DAY
     Route: 048
     Dates: start: 20151128
  3. ATORVASTATIN                       /01326102/ [Concomitant]
     Active Substance: ATORVASTATIN
     Dosage: 5MG/DAY
     Route: 048
     Dates: end: 20151119
  4. BEPRICOR TABLETS [Suspect]
     Active Substance: BEPRIDIL
     Indication: PRODUCT USED FOR UNKNOWN INDICATION
     Dosage: 200 MG, QD
     Route: 048
     Dates: start: 20150910, end: 20151120
  5. BISOPROLOL [Concomitant]
     Active Substance: BISOPROLOL
     Dosage: 2.5MG/DAY
     Route: 048
     Dates: start: 20151116, end: 20151120
  6. RENIVACE [Concomitant]
     Active Substance: ENALAPRIL
     Dosage: 2.5MG/DAY
     Route: 048
     Dates: start: 20151120, end: 20151207
  7. SUNRYTHM [Concomitant]
     Active Substance: PILSICAINIDE HYDROCHLORIDE
     Dosage: 100MG/DAY
     Route: 048
     Dates: start: 20151128
  8. MAINTATE [Concomitant]
     Active Substance: BISOPROLOL FUMARATE
     Dosage: 5MG/DAY
     Route: 048
     Dates: start: 20151128
  9. EDOXABAN [Suspect]
     Active Substance: EDOXABAN TOSYLATE
     Indication: ATRIAL FIBRILLATION
     Dosage: 60 MG, QD
     Route: 048
     Dates: start: 20150910, end: 20151123
  10. PLAVIX [Concomitant]
     Active Substance: CLOPIDOGREL BISULFATE
     Dosage: 75MG/DAY
     Route: 048
     Dates: end: 20151120
  11. FLUITRAN [Concomitant]
     Active Substance: TRICHLORMETHIAZIDE
     Dosage: 2MG/DAY
     Route: 048
     Dates: start: 20151128, end: 20151202
  12. ETHYL ICOSAPENTATE [Concomitant]
     Active Substance: ICOSAPENT ETHYL
     Dosage: 1800MG/DAY
     Route: 048
     Dates: end: 20151119
  13. ATEDIO [Concomitant]
     Dosage: 1DF/DAY
     Route: 048
     Dates: end: 20151120
  14. LASIX [Concomitant]
     Active Substance: FUROSEMIDE
     Dosage: 40MG/DAY
     Route: 048
     Dates: start: 20151120, end: 20151125
  15. SELARA [Concomitant]
     Active Substance: EPLERENONE
     Dosage: 50MG/DAY
     Route: 048
     Dates: start: 20151120

REACTIONS (1)
  - Interstitial lung disease [Not Recovered/Not Resolved]

NARRATIVE: CASE EVENT DATE: 20151119
